FAERS Safety Report 9164083 (Version 2)
Quarter: 2013Q1

REPORT INFORMATION
  Report Type: Spontaneous
  Country: ES (occurrence: ES)
  Receive Date: 20130314
  Receipt Date: 20130325
  Transmission Date: 20140127
  Serious: Yes (Death)
  Sender: FDA-Public Use
  Company Number: ES-B.I. PHARMACEUTICALS,INC./RIDGEFIELD-2013-ES-00095ES

PATIENT
  Age: 39 Year
  Sex: Female

DRUGS (2)
  1. TRAJENTA [Suspect]
     Dosage: 5 MG
     Route: 048
     Dates: start: 20120229, end: 20120708
  2. REMICADE [Suspect]
     Indication: PSORIASIS
     Route: 042
     Dates: start: 20120201, end: 20120507

REACTIONS (2)
  - Acute myocardial infarction [Fatal]
  - Acute pulmonary oedema [Fatal]
